FAERS Safety Report 10440525 (Version 2)
Quarter: 2014Q3

REPORT INFORMATION
  Report Type: Spontaneous
  Country: JP (occurrence: JP)
  Receive Date: 20140909
  Receipt Date: 20140930
  Transmission Date: 20150326
  Serious: Yes (Hospitalization, Other)
  Sender: FDA-Public Use
  Company Number: JP-ROCHE-1455754

PATIENT
  Sex: Female

DRUGS (4)
  1. INTERFERON ALFA-2B [Interacting]
     Active Substance: INTERFERON ALFA-2B
     Indication: HEPATITIS C
     Dosage: 6 MEGA UNITS (MU)
     Route: 065
     Dates: start: 200204
  2. RIBAVIRIN. [Interacting]
     Active Substance: RIBAVIRIN
     Indication: HEPATITIS C
     Route: 065
     Dates: start: 200204
  3. PEGASYS [Suspect]
     Active Substance: PEGINTERFERON ALFA-2A
     Indication: HEPATITIS C
     Route: 058
     Dates: start: 2007
  4. INTERFERON ALFA-2B [Interacting]
     Active Substance: INTERFERON ALFA-2B
     Dosage: 6 MEGA UNITS (MU)
     Route: 065

REACTIONS (4)
  - Supraventricular tachycardia [Recovered/Resolved]
  - Atrioventricular block second degree [Recovered/Resolved]
  - Interstitial lung disease [Recovered/Resolved]
  - Drug interaction [Unknown]
